FAERS Safety Report 11537487 (Version 1)
Quarter: 2015Q3

REPORT INFORMATION
  Report Type: Spontaneous
  Country: US (occurrence: US)
  Receive Date: 20150922
  Receipt Date: 20150922
  Transmission Date: 20151125
  Serious: No
  Sender: FDA-Public Use
  Company Number: US-PFIZER INC-2015314151

PATIENT
  Age: 35 Year
  Sex: Male
  Weight: 84 kg

DRUGS (1)
  1. ALPRAZOLAM. [Suspect]
     Active Substance: ALPRAZOLAM
     Dosage: 2 MG, AS NEEDED
     Route: 048
     Dates: start: 201509

REACTIONS (3)
  - Anxiety [Unknown]
  - Drug effect delayed [Unknown]
  - Drug effect incomplete [Unknown]

NARRATIVE: CASE EVENT DATE: 201509
